FAERS Safety Report 10186825 (Version 3)
Quarter: 2015Q4

REPORT INFORMATION
  Report Type: Report from Study
  Country: US (occurrence: US)
  Receive Date: 20140522
  Receipt Date: 20151110
  Transmission Date: 20160304
  Serious: Yes (Hospitalization)
  Sender: FDA-Public Use
  Company Number: US-ROCHE-1402504

PATIENT
  Sex: Female

DRUGS (9)
  1. TIMOLOL. [Concomitant]
     Active Substance: TIMOLOL
     Dosage: LEFT EYE
     Route: 065
  2. AMLODIPINE [Concomitant]
     Active Substance: AMLODIPINE BESYLATE
     Indication: HYPERTENSION
  3. LUCENTIS [Suspect]
     Active Substance: RANIBIZUMAB
     Indication: EYE HAEMORRHAGE
     Route: 050
     Dates: start: 20140117, end: 20140411
  4. LUCENTIS [Suspect]
     Active Substance: RANIBIZUMAB
     Indication: VENOUS OCCLUSION
  5. LUCENTIS [Suspect]
     Active Substance: RANIBIZUMAB
     Indication: AGE-RELATED MACULAR DEGENERATION
     Route: 050
  6. BENAZEPRIL [Concomitant]
     Active Substance: BENAZEPRIL HYDROCHLORIDE
     Indication: HYPERTENSION
  7. BYSTOLIC [Concomitant]
     Active Substance: NEBIVOLOL HYDROCHLORIDE
     Indication: HYPERTENSION
  8. LUCENTIS [Suspect]
     Active Substance: RANIBIZUMAB
     Indication: RETINAL OEDEMA
  9. ATORVASTATIN [Concomitant]
     Active Substance: ATORVASTATIN
     Indication: BLOOD CHOLESTEROL INCREASED

REACTIONS (1)
  - Lung disorder [Unknown]
